FAERS Safety Report 8756036 (Version 4)
Quarter: 2013Q1

REPORT INFORMATION
  Report Type: Spontaneous
  Country: US (occurrence: None)
  Receive Date: 20120816
  Receipt Date: 20130225
  Transmission Date: 20140127
  Serious: Yes (Hospitalization, Other)
  Sender: FDA-Public Use
  Company Number: ADR-2012-01479

PATIENT
  Age: 37 Year
  Sex: Female

DRUGS (2)
  1. LIORESAL [Suspect]
  2. SUFENTANIL [Concomitant]

REACTIONS (2)
  - Implant site infection [None]
  - Cellulitis [None]
